FAERS Safety Report 24703134 (Version 2)
Quarter: 2025Q2

REPORT INFORMATION
  Report Type: Spontaneous
  Country: FR (occurrence: FR)
  Receive Date: 20241205
  Receipt Date: 20250623
  Transmission Date: 20250717
  Serious: Yes (Hospitalization)
  Sender: PFIZER
  Company Number: None

PATIENT
  Age: 77 Year
  Sex: Female
  Weight: 81 kg

DRUGS (18)
  1. XALKORI [Suspect]
     Active Substance: CRIZOTINIB
     Indication: Bronchial carcinoma
     Dosage: 1 - 0 - 1
     Route: 048
     Dates: start: 20240220, end: 20240305
  2. XALKORI [Suspect]
     Active Substance: CRIZOTINIB
     Dosage: RESUMING TREATMENT AT 100 MG 1-0-1
     Dates: start: 20240321, end: 20240425
  3. CYCLOSPORINE [Concomitant]
     Active Substance: CYCLOSPORINE
     Indication: Renal transplant
     Route: 048
  4. NEORAL [Concomitant]
     Active Substance: CYCLOSPORINE
     Dosage: 60 MG MORNING AND EVENING (RESIDUAL CYCLOSPORINE LEVEL BETWEEN 50 AND 100 MG)
  5. MYFORTIC [Concomitant]
     Active Substance: MYCOPHENOLATE SODIUM
     Dosage: 180 MG, 2X/DAY 180 MG IN THE MORNING AND 180 MG IN THE EVENING
  6. PREDNISOLONE [Concomitant]
     Active Substance: PREDNISOLONE
     Dosage: 5 MG, 1X/DAY 5 MG IN THE MORNING
  7. ESOMEPRAZOLE SODIUM [Concomitant]
     Active Substance: ESOMEPRAZOLE SODIUM
     Dosage: 20 MG, 1X/DAY 1 TABLET IN THE EVENING
  8. ALGINIC ACID\ALUMINUM HYDROXIDE\MAGNESIUM TRISILICATE\SODIUM BICARBONA [Concomitant]
     Active Substance: ALGINIC ACID\ALUMINUM HYDROXIDE\MAGNESIUM TRISILICATE\SODIUM BICARBONATE
  9. INSULIN HUMAN [Concomitant]
     Active Substance: INSULIN HUMAN
  10. NOVORAPID [Concomitant]
     Active Substance: INSULIN ASPART
  11. KARDEGIC [Concomitant]
     Active Substance: ASPIRIN DL-LYSINE
     Dosage: 1 SACHET AT NOON
  12. TRIATEC [CAFFEINE CITRATE;CODEINE PHOSPHATE;PARACETAMOL] [Concomitant]
     Dosage: 5 MG, 2X/DAY, 1 TABLET IN THE MORNING AND EVENING
  13. AMLODIPINE [Concomitant]
     Active Substance: AMLODIPINE BESYLATE
     Dosage: 5 MG, 1 CAPSULE IN THE MORNING
  14. FUROSEMIDE [Concomitant]
     Active Substance: FUROSEMIDE
     Dosage: 40 MG, 1X/DAY, 1 TABLET IN THE MORNING
  15. CHOLECALCIFEROL [Concomitant]
     Active Substance: CHOLECALCIFEROL
     Dosage: 1 AMPOULE EVERY MONTH
  16. DOLIPRANE [Concomitant]
     Active Substance: ACETAMINOPHEN
  17. MELATONIN [Concomitant]
     Active Substance: MELATONIN
     Dosage: 1 MG, 1X/DAY,  TABLET IN THE EVENING
  18. XANAX XR [Concomitant]
     Active Substance: ALPRAZOLAM
     Dosage: 0.125 MG, 1X/DAY

REACTIONS (14)
  - Oedema [Recovered/Resolved]
  - Visual impairment [Recovered/Resolved]
  - Hypertension [Recovered/Resolved]
  - Renal failure [Recovered/Resolved]
  - Insomnia [Unknown]
  - Weight increased [Recovered/Resolved]
  - Hypoglycaemia [Recovered/Resolved]
  - Oedema peripheral [Recovered/Resolved]
  - Blood creatine increased [Recovered/Resolved]
  - Eye pain [Unknown]
  - Face oedema [Unknown]
  - Ocular hyperaemia [Unknown]
  - Restless legs syndrome [Unknown]
  - Hypertension [Unknown]

NARRATIVE: CASE EVENT DATE: 20240305
